FAERS Safety Report 12481640 (Version 1)
Quarter: 2016Q2

REPORT INFORMATION
  Report Type: Report from Study
  Country: CA (occurrence: CA)
  Receive Date: 20160620
  Receipt Date: 20160620
  Transmission Date: 20160815
  Serious: Yes (Other)
  Sender: FDA-Public Use
  Company Number: CA-AMGEN-CANSL2016075770

PATIENT
  Age: 65 Year
  Sex: Female

DRUGS (8)
  1. INSULIN [Concomitant]
     Active Substance: INSULIN NOS
     Dosage: UNK
  2. VICTOZA [Concomitant]
     Active Substance: LIRAGLUTIDE
     Dosage: UNK
  3. NITRO [Concomitant]
     Active Substance: NITROGLYCERIN
     Dosage: UNK
  4. REPATHA [Suspect]
     Active Substance: EVOLOCUMAB
     Indication: DYSLIPIDAEMIA
     Dosage: 140 MG/1 ML, UNK
     Route: 065
     Dates: start: 20160407
  5. DOXAZOSIN [Concomitant]
     Active Substance: DOXAZOSIN\DOXAZOSIN MESYLATE
     Dosage: UNK
  6. EDECRIN [Concomitant]
     Active Substance: ETHACRYNIC ACID
     Dosage: UNK
  7. ISDN [Concomitant]
     Dosage: UNK
  8. NICARDIA [Concomitant]
     Dosage: UNK

REACTIONS (7)
  - Joint swelling [Unknown]
  - Transient ischaemic attack [Unknown]
  - Choking [Unknown]
  - Condition aggravated [Unknown]
  - Rhinorrhoea [Unknown]
  - Gait disturbance [Unknown]
  - Pulmonary oedema [Unknown]

NARRATIVE: CASE EVENT DATE: 2016
